FAERS Safety Report 4377412-8 (Version None)
Quarter: 2004Q2

REPORT INFORMATION
  Report Type: 
  Country: None (occurrence: None)
  Receive Date: 20040609
  Receipt Date: 20040423
  Transmission Date: 20050107
  Serious: No
  Sender: FDA-Public Use
  Company Number: 2004210817US

PATIENT
  Age: 79 Year
  Sex: Female

DRUGS (2)
  1. BEXTRA [Suspect]
     Indication: ARTHRITIS
     Dosage: 10 MG, QD, UNKNOWN
     Dates: start: 20040420
  2. DIAZEPAM [Concomitant]

REACTIONS (2)
  - DIARRHOEA [None]
  - GAIT DISTURBANCE [None]
